FAERS Safety Report 5658526-9 (Version None)
Quarter: 2008Q1

REPORT INFORMATION
  Report Type: 
  Country: None (occurrence: None)
  Receive Date: 20080310
  Receipt Date: 20070228
  Transmission Date: 20080703
  Serious: No
  Sender: FDA-Public Use
  Company Number: US-BAYER-200710646BCC

PATIENT
  Age: 81 Year
  Sex: Male
  Weight: 118 kg

DRUGS (3)
  1. ALEVE [Suspect]
     Indication: ARTHRITIS
     Dosage: UNIT DOSE: 220 MG
     Route: 048
     Dates: start: 20060101
  2. DIABETES MEDICATION [Concomitant]
  3. GLAUCOMA MEDICATION [Concomitant]

REACTIONS (1)
  - RASH [None]
